FAERS Safety Report 7763141-7 (Version None)
Quarter: 2011Q3

REPORT INFORMATION
  Report Type: 
  Country: None (occurrence: None)
  Receive Date: 20110920
  Receipt Date: 20110909
  Transmission Date: 20111222
  Serious: Yes (Hospitalization)
  Sender: FDA-Public Use
  Company Number: PHHO2011IT15316

PATIENT
  Sex: Female
  Weight: 57.5 kg

DRUGS (3)
  1. AFINITOR [Suspect]
     Dosage: 10 MG, UNK
     Dates: start: 20110809
  2. AFINITOR [Suspect]
     Indication: NEUROENDOCRINE TUMOUR
     Dosage: 10 MG, UNK
     Dates: start: 20100205, end: 20110722
  3. ENOXAPARIN SODIUM [Concomitant]
     Indication: THROMBOSIS
     Dosage: UNK
     Dates: start: 20090801

REACTIONS (2)
  - LYMPHANGITIS [None]
  - LYMPHOEDEMA [None]
